FAERS Safety Report 15100436 (Version 1)
Quarter: 2018Q3

REPORT INFORMATION
  Report Type: Spontaneous
  Country: IT (occurrence: IT)
  Receive Date: 20180703
  Receipt Date: 20180703
  Transmission Date: 20181010
  Serious: Yes (Hospitalization)
  Sender: FDA-Public Use
  Company Number: IT-TEVA-2018-IT-918284

PATIENT
  Age: 77 Year
  Sex: Male

DRUGS (9)
  1. MIRTAZAPINE. [Suspect]
     Active Substance: MIRTAZAPINE
     Indication: DEPRESSION
     Dosage: 30 MILLIGRAM DAILY;
     Route: 048
     Dates: start: 20170101, end: 20170805
  2. FORZAAR [Concomitant]
     Route: 065
  3. CLOTIAZEPAM [Suspect]
     Active Substance: CLOTIAZEPAM
     Indication: DEPRESSION
     Route: 048
     Dates: start: 20170104, end: 20170104
  4. HUMULIN NOS [Concomitant]
     Active Substance: INSULIN HUMAN
  5. TENORMIN [Concomitant]
     Active Substance: ATENOLOL
     Route: 065
  6. LANTUS [Concomitant]
     Active Substance: INSULIN GLARGINE
  7. TORVAST [Concomitant]
     Active Substance: ATORVASTATIN
     Route: 065
  8. ZYLLT [Concomitant]
     Active Substance: CLOPIDOGREL BISULFATE
     Route: 065
  9. TRITTICO [Suspect]
     Active Substance: TRAZODONE HYDROCHLORIDE
     Indication: DEPRESSION
     Dosage: 24 GTT DAILY;
     Route: 048
     Dates: start: 20170101, end: 20170805

REACTIONS (2)
  - Delusional disorder, persecutory type [Unknown]
  - Psychomotor hyperactivity [Unknown]

NARRATIVE: CASE EVENT DATE: 20170805
